FAERS Safety Report 8309057-9 (Version None)
Quarter: 2012Q2

REPORT INFORMATION
  Report Type: 
  Country: None (occurrence: None)
  Receive Date: 20120424
  Receipt Date: 20120419
  Transmission Date: 20120825
  Serious: Yes (Other)
  Sender: FDA-Public Use
  Company Number: CA-ROCHE-1060379

PATIENT
  Sex: Female
  Weight: 83.99 kg

DRUGS (10)
  1. DIPHENHYDRAMINE HCL [Concomitant]
     Indication: PREMEDICATION
     Route: 048
     Dates: start: 20111222, end: 20111222
  2. SOLUCORT [Concomitant]
     Indication: PREMEDICATION
     Route: 042
     Dates: start: 20111222, end: 20111222
  3. MABTHERA [Suspect]
     Indication: RHEUMATOID ARTHRITIS
     Route: 042
     Dates: start: 20080212
  4. CALCIUM [Concomitant]
     Route: 065
  5. ACETAMINOPHEN [Concomitant]
     Indication: PREMEDICATION
     Route: 048
     Dates: start: 20111222, end: 20111222
  6. METHOTREXATE [Concomitant]
     Route: 058
  7. IRON [Concomitant]
     Route: 065
  8. ASCORBIC ACID [Concomitant]
     Route: 065
  9. VITAMIN D [Concomitant]
     Route: 065
  10. FOLIC ACID [Concomitant]
     Route: 065

REACTIONS (3)
  - UPPER LIMB FRACTURE [None]
  - DYSPNOEA [None]
  - FLUSHING [None]
